FAERS Safety Report 21424017 (Version 1)
Quarter: 2022Q4

REPORT INFORMATION
  Report Type: Spontaneous
  Country: CH (occurrence: CH)
  Receive Date: 20221007
  Receipt Date: 20221007
  Transmission Date: 20230113
  Serious: Yes (Other)
  Sender: FDA-Public Use
  Company Number: CH-ABBVIE-4134520

PATIENT

DRUGS (2)
  1. HUMIRA [Suspect]
     Active Substance: ADALIMUMAB
     Indication: Product used for unknown indication
     Route: 058
  2. Prednisonum (Prednison) [Concomitant]
     Indication: Macular oedema
     Dates: start: 202005

REACTIONS (8)
  - Macular oedema [Not Recovered/Not Resolved]
  - Panic attack [Not Recovered/Not Resolved]
  - Electric shock sensation [Not Recovered/Not Resolved]
  - Corneal scar [Unknown]
  - Paraesthesia [Not Recovered/Not Resolved]
  - Dizziness [Not Recovered/Not Resolved]
  - Iridocyclitis [Not Recovered/Not Resolved]
  - Papillitis [Not Recovered/Not Resolved]

NARRATIVE: CASE EVENT DATE: 20191001
